FAERS Safety Report 19645017 (Version 4)
Quarter: 2022Q1

REPORT INFORMATION
  Report Type: Spontaneous
  Country: US (occurrence: US)
  Receive Date: 20210802
  Receipt Date: 20220207
  Transmission Date: 20220423
  Serious: Yes (Other)
  Sender: FDA-Public Use
  Company Number: US-BAUSCH-BL-2021-022465

PATIENT
  Age: 76 Year
  Sex: Female

DRUGS (4)
  1. APRISO [Suspect]
     Active Substance: MESALAMINE
     Indication: Crohn^s disease
     Route: 065
     Dates: start: 2003
  2. APRISO [Suspect]
     Active Substance: MESALAMINE
     Indication: Product use in unapproved indication
  3. MESALAMINE [Suspect]
     Active Substance: MESALAMINE
     Indication: Crohn^s disease
     Route: 065
  4. MESALAMINE [Suspect]
     Active Substance: MESALAMINE
     Indication: Product use in unapproved indication

REACTIONS (12)
  - Crohn^s disease [Unknown]
  - Disease recurrence [Unknown]
  - Lung disorder [Unknown]
  - Dyspnoea [Unknown]
  - Overgrowth bacterial [Unknown]
  - Abdominal pain [Unknown]
  - Nausea [Unknown]
  - Drug ineffective [Unknown]
  - Product substitution issue [Unknown]
  - Insurance issue [Unknown]
  - Product counterfeit [Unknown]
  - Product use in unapproved indication [Unknown]

NARRATIVE: CASE EVENT DATE: 20030101
